FAERS Safety Report 19884491 (Version 1)
Quarter: 2021Q3

REPORT INFORMATION
  Report Type: Spontaneous
  Country: US (occurrence: US)
  Receive Date: 20210923
  Receipt Date: 20210923
  Transmission Date: 20211014
  Serious: No
  Sender: FDA-Public Use
  Company Number: None

PATIENT
  Age: 76 Year
  Sex: Male
  Weight: 93 kg

DRUGS (2)
  1. CARVEDILOL (CARVEDILOL 6.25 MG TAB) [Suspect]
     Active Substance: CARVEDILOL
     Indication: CORONARY ARTERY DISEASE
     Route: 048
     Dates: start: 20210617, end: 20210617
  2. CARVEDILOL (CARVEDILOL 6.25 MG TAB) [Suspect]
     Active Substance: CARVEDILOL
     Indication: CHEST PAIN
     Route: 048
     Dates: start: 20210617, end: 20210617

REACTIONS (2)
  - Dyspnoea [None]
  - Angioedema [None]

NARRATIVE: CASE EVENT DATE: 20210618
